FAERS Safety Report 13416416 (Version 3)
Quarter: 2017Q2

REPORT INFORMATION
  Report Type: Spontaneous
  Country: FR (occurrence: FR)
  Receive Date: 20170407
  Receipt Date: 20170518
  Transmission Date: 20170830
  Serious: Yes (Life-Threatening, Hospitalization)
  Sender: FDA-Public Use
  Company Number: FR-JNJFOC-20170405381

PATIENT
  Age: 51 Year
  Sex: Male

DRUGS (6)
  1. GLYCEROL [Concomitant]
     Active Substance: GLYCERIN
  2. EVICEL [Suspect]
     Active Substance: FIBRINOGEN HUMAN\THROMBIN HUMAN
     Indication: WOUND CLOSURE
     Route: 061
     Dates: start: 20170228, end: 20170228
  3. DUPHALAC [Concomitant]
     Active Substance: LACTULOSE
  4. PARACETAMOL [Concomitant]
     Active Substance: ACETAMINOPHEN
  5. AERIUS [Concomitant]
     Active Substance: DESLORATADINE
  6. EVICEL [Suspect]
     Active Substance: FIBRINOGEN HUMAN\THROMBIN HUMAN
     Route: 061

REACTIONS (7)
  - Drug ineffective [Recovering/Resolving]
  - Meningitis [Recovered/Resolved]
  - Pyrexia [Recovering/Resolving]
  - Vomiting [Recovering/Resolving]
  - Neurological examination abnormal [Recovering/Resolving]
  - Pneumocephalus [Recovering/Resolving]
  - Off label use [Unknown]

NARRATIVE: CASE EVENT DATE: 20170228
